FAERS Safety Report 6766143-2 (Version None)
Quarter: 2010Q2

REPORT INFORMATION
  Report Type: 
  Country: None (occurrence: None)
  Receive Date: 20100611
  Receipt Date: 20100531
  Transmission Date: 20101027
  Serious: Yes (Hospitalization)
  Sender: FDA-Public Use
  Company Number: AT-SANOFI-AVENTIS-2010SA031213

PATIENT
  Age: 48 Year
  Sex: Male

DRUGS (10)
  1. LOVENOX [Suspect]
     Indication: DRUG USE FOR UNKNOWN INDICATION
     Route: 051
     Dates: start: 20100306
  2. NOZINAN [Suspect]
     Indication: INSOMNIA
     Route: 048
     Dates: start: 20100309, end: 20100310
  3. NOZINAN [Suspect]
     Route: 048
     Dates: start: 20100311
  4. HALDOL [Suspect]
     Indication: ALCOHOL ABUSE
     Route: 048
     Dates: start: 20100310, end: 20100310
  5. HALDOL [Suspect]
     Route: 048
     Dates: start: 20100311
  6. VALPROATE SODIUM [Suspect]
     Indication: DRUG USE FOR UNKNOWN INDICATION
     Route: 048
     Dates: start: 20100306, end: 20100306
  7. MOGADON [Suspect]
     Indication: DRUG USE FOR UNKNOWN INDICATION
     Route: 048
     Dates: start: 20100306, end: 20100310
  8. PANTOPRAZOLE [Suspect]
     Indication: DRUG USE FOR UNKNOWN INDICATION
     Route: 048
     Dates: start: 20100306, end: 20100311
  9. LORAZEPAM [Suspect]
     Indication: ALCOHOL ABUSE
     Route: 048
     Dates: start: 20100310, end: 20100310
  10. LORAZEPAM [Suspect]
     Route: 048
     Dates: start: 20100311

REACTIONS (1)
  - EXTRAPYRAMIDAL DISORDER [None]
